FAERS Safety Report 17576914 (Version 2)
Quarter: 2020Q3

REPORT INFORMATION
  Report Type: Spontaneous
  Country: US (occurrence: US)
  Receive Date: 20200324
  Receipt Date: 20200810
  Transmission Date: 20201102
  Serious: Yes (Other)
  Sender: FDA-Public Use
  Company Number: US-GILEAD-2020-0455788

PATIENT
  Age: 42 Year
  Sex: Male

DRUGS (2)
  1. TRUVADA [Suspect]
     Active Substance: EMTRICITABINE\TENOFOVIR DISOPROXIL FUMARATE
     Indication: HIV INFECTION
     Dosage: UNK
     Route: 048
     Dates: start: 20070301, end: 20081001
  2. VIREAD [Suspect]
     Active Substance: TENOFOVIR DISOPROXIL FUMARATE
     Indication: HIV INFECTION
     Dosage: UNK
     Route: 048
     Dates: start: 2009, end: 2010

REACTIONS (10)
  - Bone density decreased [Unknown]
  - Renal failure [Not Recovered/Not Resolved]
  - Pain [Unknown]
  - Osteonecrosis [Unknown]
  - Tooth loss [Unknown]
  - Bone loss [Unknown]
  - Osteopenia [Not Recovered/Not Resolved]
  - Chronic kidney disease [Not Recovered/Not Resolved]
  - Economic problem [Unknown]
  - Emotional distress [Unknown]

NARRATIVE: CASE EVENT DATE: 200905
